FAERS Safety Report 5599395-5 (Version None)
Quarter: 2008Q1

REPORT INFORMATION
  Report Type: 
  Country: None (occurrence: None)
  Receive Date: 20080122
  Receipt Date: 20080112
  Transmission Date: 20080703
  Serious: Yes (Hospitalization, Other)
  Sender: FDA-Public Use
  Company Number: US-PFIZER INC-2008004137

PATIENT
  Sex: Male
  Weight: 67.727 kg

DRUGS (1)
  1. CARDURA [Suspect]
     Indication: BENIGN PROSTATIC HYPERPLASIA

REACTIONS (3)
  - BENIGN NEOPLASM OF THYROID GLAND [None]
  - NECK PAIN [None]
  - PHARYNGOLARYNGEAL PAIN [None]
